FAERS Safety Report 13469035 (Version 4)
Quarter: 2017Q2

REPORT INFORMATION
  Report Type: Spontaneous
  Country: BR (occurrence: BR)
  Receive Date: 20170421
  Receipt Date: 20170627
  Transmission Date: 20170830
  Serious: Yes (Other)
  Sender: FDA-Public Use
  Company Number: BR-AMGEN-BRASP2017060750

PATIENT
  Age: 11 Year
  Sex: Female

DRUGS (3)
  1. ENBREL [Suspect]
     Active Substance: ETANERCEPT
     Indication: JUVENILE IDIOPATHIC ARTHRITIS
     Dosage: 25 MG, UNK
     Route: 065
     Dates: start: 20170304, end: 20170325
  2. ENBREL [Suspect]
     Active Substance: ETANERCEPT
     Dosage: 25 MG, ONCE WEEKLY
     Route: 065
     Dates: start: 20170427
  3. PREDSIM [Concomitant]
     Active Substance: PREDNISOLONE
     Indication: JUVENILE IDIOPATHIC ARTHRITIS
     Dosage: 2ML IN THE MORNING AND 1MOL AT NIGHT
     Dates: start: 2016

REACTIONS (14)
  - Malaise [Recovered/Resolved]
  - Injection site pain [Recovered/Resolved]
  - Pain [Recovering/Resolving]
  - Abasia [Recovered/Resolved]
  - Epistaxis [Recovered/Resolved]
  - Cough [Recovering/Resolving]
  - Injection site discomfort [Recovered/Resolved]
  - Fatigue [Not Recovered/Not Resolved]
  - Fear [Recovered/Resolved]
  - Influenza [Not Recovered/Not Resolved]
  - Blood pressure increased [Recovered/Resolved]
  - Blood cholesterol increased [Recovered/Resolved]
  - Fear of injection [Recovered/Resolved]
  - Headache [Recovering/Resolving]

NARRATIVE: CASE EVENT DATE: 2017
